FAERS Safety Report 13175039 (Version 1)
Quarter: 2017Q1

REPORT INFORMATION
  Report Type: Spontaneous
  Country: ES (occurrence: ES)
  Receive Date: 20170201
  Receipt Date: 20170201
  Transmission Date: 20170428
  Serious: Yes (Hospitalization)
  Sender: FDA-Public Use
  Company Number: ES-JNJFOC-20170123564

PATIENT
  Age: 85 Year
  Sex: Female

DRUGS (6)
  1. DUROGESIC [Suspect]
     Active Substance: FENTANYL
     Indication: POLYNEUROPATHY
     Dosage: 1 DOSAGE FORM 1 PATCH EVERY 72 HOURS
     Route: 062
     Dates: start: 2016, end: 20161006
  2. SEVREDOL [Interacting]
     Active Substance: MORPHINE
     Indication: POLYNEUROPATHY
     Route: 048
     Dates: start: 2016, end: 20161006
  3. ORFIDAL [Interacting]
     Active Substance: LORAZEPAM
     Indication: PRODUCT USED FOR UNKNOWN INDICATION
     Route: 048
     Dates: start: 2016
  4. DUROGESIC [Suspect]
     Active Substance: FENTANYL
     Indication: POLYNEUROPATHY
     Route: 062
  5. XICIL [Suspect]
     Active Substance: GLUCOSAMINE SULFATE
     Indication: OSTEOARTHRITIS
     Route: 048
     Dates: start: 2016, end: 20161006
  6. BROMAZEPAM [Interacting]
     Active Substance: BROMAZEPAM
     Indication: PRODUCT USED FOR UNKNOWN INDICATION
     Route: 048
     Dates: start: 2016

REACTIONS (2)
  - Drug interaction [Unknown]
  - Depressed level of consciousness [Recovering/Resolving]

NARRATIVE: CASE EVENT DATE: 201610
